FAERS Safety Report 7810947-1 (Version None)
Quarter: 2011Q4

REPORT INFORMATION
  Report Type: 
  Country: None (occurrence: None)
  Receive Date: 20111013
  Receipt Date: 20111007
  Transmission Date: 20120403
  Serious: No
  Sender: FDA-Public Use
  Company Number: US-PFIZER INC-2011241326

PATIENT
  Sex: Male

DRUGS (3)
  1. LIPITOR [Suspect]
     Dosage: 20 MG, 1X/DAY
     Route: 048
     Dates: end: 20110923
  2. LISINOPRIL [Concomitant]
     Dosage: UNK
  3. CYANOCOBALAMIN [Suspect]
     Indication: VITAMIN SUPPLEMENTATION
     Dosage: UNK, (ONE TABLET ONCE DAILY)
     Route: 048
     Dates: start: 20031201, end: 20110923

REACTIONS (3)
  - TINNITUS [None]
  - HEADACHE [None]
  - DYSPNOEA [None]
